FAERS Safety Report 9699331 (Version 1)
Quarter: 2013Q4

REPORT INFORMATION
  Report Type: Spontaneous
  Country: US (occurrence: US)
  Receive Date: 20131120
  Receipt Date: 20131120
  Transmission Date: 20140711
  Serious: No
  Sender: FDA-Public Use
  Company Number: US-GILEAD-2008-0015682

PATIENT
  Sex: Female
  Weight: 74.84 kg

DRUGS (8)
  1. LETAIRIS [Suspect]
     Indication: PULMONARY ARTERIAL HYPERTENSION
     Route: 048
     Dates: start: 20071212
  2. REVATIO [Concomitant]
     Route: 048
  3. ENALAPRIL [Concomitant]
     Route: 048
  4. NORVASC [Concomitant]
     Route: 048
  5. INDAPAMIDE [Concomitant]
     Route: 048
  6. IMURAN [Concomitant]
     Route: 048
  7. ZYRTEC [Concomitant]
     Route: 048
  8. POTASSIUM CHLORIDE [Concomitant]
     Route: 048

REACTIONS (1)
  - Oedema [Unknown]
